FAERS Safety Report 5553436-X (Version None)
Quarter: 2007Q4

REPORT INFORMATION
  Report Type: 
  Country: None (occurrence: None)
  Receive Date: 20071211
  Receipt Date: 20071203
  Transmission Date: 20080405
  Serious: Yes (Hospitalization)
  Sender: FDA-Public Use
  Company Number: TPA2007A02066

PATIENT
  Age: 64 Year
  Sex: Male

DRUGS (5)
  1. ACTOS [Suspect]
     Dosage: PER ORAL
     Route: 048
  2. SEROQUEL [Concomitant]
  3. GLYBURIDE [Concomitant]
  4. METFORMIN HCL [Concomitant]
  5. CATAPRES [Concomitant]

REACTIONS (2)
  - ACUTE PULMONARY OEDEMA [None]
  - CARDIAC FAILURE CONGESTIVE [None]
